FAERS Safety Report 5871736-0 (Version None)
Quarter: 2008Q3

REPORT INFORMATION
  Report Type: 
  Country: None (occurrence: None)
  Receive Date: 20080904
  Receipt Date: 20080904
  Transmission Date: 20090109
  Serious: Yes (Death)
  Sender: FDA-Public Use
  Company Number: None

PATIENT
  Sex: Male
  Weight: 78.9259 kg

DRUGS (1)
  1. XELODA [Suspect]
     Indication: COLON CANCER
     Dosage: 1500MG TWICE DAILY PO
     Route: 048
     Dates: start: 20080716, end: 20080808

REACTIONS (4)
  - CARDIAC ARREST [None]
  - CARDIOTOXICITY [None]
  - HYPOXIC ENCEPHALOPATHY [None]
  - VENTRICULAR FIBRILLATION [None]
